FAERS Safety Report 12735528 (Version 4)
Quarter: 2016Q4

REPORT INFORMATION
  Report Type: Report from Study
  Country: US (occurrence: US)
  Receive Date: 20160912
  Receipt Date: 20161004
  Transmission Date: 20170207
  Serious: No
  Sender: FDA-Public Use
  Company Number: US-ALEXION PHARMACEUTICALS INC.-A201606656

PATIENT
  Sex: Male

DRUGS (1)
  1. SOLIRIS [Suspect]
     Active Substance: ECULIZUMAB
     Indication: HAEMOLYTIC URAEMIC SYNDROME
     Route: 042

REACTIONS (17)
  - Blood creatinine increased [Unknown]
  - White blood cell count decreased [Unknown]
  - Blood phosphorus increased [Unknown]
  - Blood chloride decreased [Unknown]
  - Glomerular filtration rate decreased [Unknown]
  - Alanine aminotransferase abnormal [Unknown]
  - Haematocrit decreased [Unknown]
  - Red blood cell count decreased [Unknown]
  - Aspartate aminotransferase decreased [Unknown]
  - Carbon dioxide decreased [Unknown]
  - Haemoglobin decreased [Unknown]
  - Blood glucose increased [Unknown]
  - Lymphocyte count decreased [Unknown]
  - Blood sodium decreased [Unknown]
  - Blood urea increased [Unknown]
  - Blood calcium decreased [Unknown]
  - Mean cell volume decreased [Unknown]

NARRATIVE: CASE EVENT DATE: 20160816
